FAERS Safety Report 11273755 (Version 1)
Quarter: 2015Q3

REPORT INFORMATION
  Report Type: Spontaneous
  Country: US (occurrence: US)
  Receive Date: 20150715
  Receipt Date: 20150715
  Transmission Date: 20151125
  Serious: No
  Sender: FDA-Public Use
  Company Number: US-ENDO PHARMACEUTICALS INC.-201405012

PATIENT
  Age: 60 Year
  Sex: Male

DRUGS (2)
  1. EDEX [Suspect]
     Active Substance: ALPROSTADIL
     Indication: PRODUCT USED FOR UNKNOWN INDICATION
     Route: 017
     Dates: start: 201402
  2. DIOVAN [Concomitant]
     Active Substance: VALSARTAN

REACTIONS (4)
  - Drug ineffective [Unknown]
  - Incorrect dose administered [Unknown]
  - Erectile dysfunction [Not Recovered/Not Resolved]
  - Incorrect product storage [Unknown]
